FAERS Safety Report 7816018-2 (Version None)
Quarter: 2011Q4

REPORT INFORMATION
  Report Type: 
  Country: None (occurrence: None)
  Receive Date: 20111014
  Receipt Date: 20111007
  Transmission Date: 20120403
  Serious: Yes (Other)
  Sender: FDA-Public Use
  Company Number: BR-B.I. PHARMACEUTICALS,INC./RIDGEFIELD-2011-DE-05637GD

PATIENT
  Age: 34 Year
  Sex: Male

DRUGS (4)
  1. AMANTADINE HCL [Suspect]
     Indication: PARKINSON'S DISEASE
     Dosage: 300 MG
  2. SELEGILINE [Suspect]
     Indication: PARKINSON'S DISEASE
     Dosage: 10 MG
  3. PRAMIPEXOLE DIHYDROCHLORIDE [Suspect]
     Indication: PARKINSON'S DISEASE
     Dosage: 4.5 MG
  4. BIPERIDEN HYDROCHLORIDE TAB [Suspect]
     Indication: PARKINSON'S DISEASE
     Dosage: 6 MG

REACTIONS (7)
  - SLEEP APNOEA SYNDROME [None]
  - WEIGHT INCREASED [None]
  - MIDDLE INSOMNIA [None]
  - SLEEP-RELATED EATING DISORDER [None]
  - RAPID EYE MOVEMENTS SLEEP ABNORMAL [None]
  - BINGE EATING [None]
  - SOMNOLENCE [None]
